FAERS Safety Report 4753900-7 (Version None)
Quarter: 2005Q3

REPORT INFORMATION
  Report Type: 
  Country: None (occurrence: None)
  Receive Date: 20050823
  Receipt Date: 20050602
  Transmission Date: 20060218
  Serious: No
  Sender: FDA-Public Use
  Company Number: 215001

PATIENT
  Sex: 0

DRUGS (1)
  1. RAPTIVA [Suspect]

REACTIONS (1)
  - ARTHROPATHY [None]
